FAERS Safety Report 16402109 (Version 2)
Quarter: 2019Q3

REPORT INFORMATION
  Report Type: Report from Study
  Country: US (occurrence: US)
  Receive Date: 20190607
  Receipt Date: 20190725
  Transmission Date: 20191004
  Serious: No
  Sender: FDA-Public Use
  Company Number: US-AMGEN-USASP2019089042

PATIENT
  Age: 66 Year
  Sex: Female

DRUGS (1)
  1. ENBREL [Suspect]
     Active Substance: ETANERCEPT
     Indication: ANKYLOSING SPONDYLITIS
     Dosage: 50 MILLIGRAM, QWK
     Route: 065
     Dates: start: 201905

REACTIONS (6)
  - Gait disturbance [Unknown]
  - Therapeutic product effect decreased [Unknown]
  - Ligament sprain [Unknown]
  - Foot fracture [Unknown]
  - Hypothyroidism [Unknown]
  - Skin discolouration [Unknown]

NARRATIVE: CASE EVENT DATE: 2019
